FAERS Safety Report 13870595 (Version 2)
Quarter: 2017Q3

REPORT INFORMATION
  Report Type: Report from Study
  Country: US (occurrence: US)
  Receive Date: 20170815
  Receipt Date: 20170914
  Transmission Date: 20171127
  Serious: Yes (Other)
  Sender: FDA-Public Use
  Company Number: US-GILEAD-2017-0287850

PATIENT
  Age: 92 Year
  Sex: Female

DRUGS (2)
  1. IDELALISIB [Suspect]
     Active Substance: IDELALISIB
     Indication: CHRONIC LYMPHOCYTIC LEUKAEMIA
     Dosage: 100 MG, BID
     Route: 048
     Dates: start: 20151209
  2. IDELALISIB [Suspect]
     Active Substance: IDELALISIB
     Dosage: 100 MG, QD
     Route: 048

REACTIONS (6)
  - Mucous stools [Not Recovered/Not Resolved]
  - Urinary tract infection [Unknown]
  - Gastrointestinal disorder [Not Recovered/Not Resolved]
  - Bowel movement irregularity [Unknown]
  - Abdominal pain upper [Unknown]
  - Blood count abnormal [Unknown]
